FAERS Safety Report 9902513 (Version 2)
Quarter: 2014Q1

REPORT INFORMATION
  Report Type: Spontaneous
  Country: IT (occurrence: IT)
  Receive Date: 20140217
  Receipt Date: 20140219
  Transmission Date: 20141002
  Serious: Yes (Death, Disabling)
  Sender: FDA-Public Use
  Company Number: IT-JNJFOC-20140207556

PATIENT
  Age: 86 Year
  Sex: Female
  Weight: 50 kg

DRUGS (7)
  1. RIVAROXABAN [Suspect]
     Indication: ATRIAL FIBRILLATION
     Route: 048
     Dates: start: 20140107, end: 20140124
  2. RIVAROXABAN [Suspect]
     Indication: INTERNATIONAL NORMALISED RATIO FLUCTUATION
     Route: 048
     Dates: start: 20140107, end: 20140124
  3. CONGESCOR [Concomitant]
     Route: 048
  4. MEDROL [Concomitant]
     Route: 048
  5. NATECAL [Concomitant]
     Route: 048
  6. ZESTORETIC [Concomitant]
     Route: 048
  7. EUTIROX [Concomitant]
     Route: 065

REACTIONS (2)
  - Basilar artery thrombosis [Fatal]
  - Ischaemic stroke [Fatal]
